FAERS Safety Report 4700132-4 (Version None)
Quarter: 2005Q2

REPORT INFORMATION
  Report Type: 
  Country: None (occurrence: None)
  Receive Date: 20050624
  Receipt Date: 20050624
  Transmission Date: 20051028
  Serious: Yes (Hospitalization)
  Sender: FDA-Public Use
  Company Number: None

PATIENT
  Age: 77 Year
  Sex: Male

DRUGS (11)
  1. PLAVIX [Suspect]
     Indication: STENT PLACEMENT
     Dosage: 75MG    DAILY   ORAL
     Route: 048
     Dates: start: 20050421, end: 20050524
  2. ASPIRIN [Suspect]
     Indication: STENT PLACEMENT
     Dosage: 81MG   DAILY   ORAL
     Route: 048
     Dates: start: 20020814, end: 20050524
  3. FERROUS SULFATE [Concomitant]
  4. VITAMIN B-12 [Concomitant]
  5. GLIPIZIDE [Concomitant]
  6. IMDUR [Concomitant]
  7. ATENOLOL [Concomitant]
  8. AVANDIA [Concomitant]
  9. ZOCOR [Concomitant]
  10. HYTRIN [Concomitant]
  11. AVAPRO [Concomitant]

REACTIONS (1)
  - SUBDURAL HAEMATOMA [None]
